FAERS Safety Report 24894364 (Version 1)
Quarter: 2025Q1

REPORT INFORMATION
  Report Type: Report from Study
  Country: GR (occurrence: GR)
  Receive Date: 20250128
  Receipt Date: 20250128
  Transmission Date: 20250408
  Serious: No
  Sender: SANDOZ
  Company Number: GR-002147023-NVSC2023GR099011

PATIENT
  Age: 12 Year
  Sex: Male
  Weight: 46 kg

DRUGS (1)
  1. OMNITROPE [Suspect]
     Active Substance: SOMATROPIN
     Indication: Growth hormone deficiency
     Route: 058
     Dates: start: 202110

REACTIONS (7)
  - Familial mediterranean fever [Unknown]
  - Gait disturbance [Unknown]
  - Gene mutation [Unknown]
  - Drug dose omission by device [Unknown]
  - Drug effect less than expected [Unknown]
  - Product use issue [Unknown]
  - Device issue [Unknown]

NARRATIVE: CASE EVENT DATE: 20230416
